FAERS Safety Report 5308357-4 (Version None)
Quarter: 2007Q2

REPORT INFORMATION
  Report Type: 
  Country: None (occurrence: None)
  Receive Date: 20070420
  Receipt Date: 20070411
  Transmission Date: 20071010
  Serious: Yes (Hospitalization, Other)
  Sender: FDA-Public Use
  Company Number: 163-21880-07020090

PATIENT
  Age: 75 Year
  Sex: Male

DRUGS (29)
  1. REVLIMID [Suspect]
     Indication: MYELODYSPLASTIC SYNDROME
     Dosage: 10 MG, 2 IN 1 D, ORAL
     Route: 048
     Dates: start: 20070120, end: 20070201
  2. PROCRIT [Concomitant]
  3. ASPIRIN [Concomitant]
  4. PLAVIX [Concomitant]
  5. COLCHICINE (COLCHICINE) [Concomitant]
  6. VOLTAREN [Concomitant]
  7. LASIX [Concomitant]
  8. INSULIN (INSULIN) [Concomitant]
  9. COZAAR [Concomitant]
  10. LOPRESSOR [Concomitant]
  11. PREDNISONE TAB [Concomitant]
  12. NIFEREX (POLYSACCHARIDE-IRON COMPLEX) (CAPSULES) [Concomitant]
  13. AVAPRO [Concomitant]
  14. VYTORIN [Concomitant]
  15. PRANDIN (DEFLAZACORT) [Concomitant]
  16. COMBIVENT [Concomitant]
  17. BECONASE (BECLOMETASONE DIPROPIONATE) (NASAL DROPS (INCLUDING NASAL SP [Concomitant]
  18. LIDOCAINE (LIDOCAINE) (3 PERCENT) [Concomitant]
  19. CORTISONE (CORTISONE) (CREAM) [Concomitant]
  20. HYDREA (HYDROXYCARBAMIDE) (CAPSULES) [Concomitant]
  21. OXYCONTIN [Concomitant]
  22. VICODIN [Concomitant]
  23. LIDODERM (LIDOCAINE) (5 PERCENT, POULTICE OR PATCH) [Concomitant]
  24. ARTHROTEC [Concomitant]
  25. METOPROLOL TARTRATE [Concomitant]
  26. CYTOTEC [Concomitant]
  27. AVELOX [Concomitant]
  28. VANCOMYCIN [Concomitant]
  29. DARVOCET [Concomitant]

REACTIONS (25)
  - ABDOMINAL PAIN [None]
  - ACUTE RESPIRATORY DISTRESS SYNDROME [None]
  - ANAEMIA [None]
  - ANAPHYLACTIC REACTION [None]
  - ATRIOVENTRICULAR BLOCK COMPLETE [None]
  - BUNDLE BRANCH BLOCK RIGHT [None]
  - CARDIAC FAILURE CONGESTIVE [None]
  - CHRONIC OBSTRUCTIVE PULMONARY DISEASE [None]
  - CONSTIPATION [None]
  - DEEP VEIN THROMBOSIS [None]
  - DIARRHOEA [None]
  - DYSPHONIA [None]
  - DYSURIA [None]
  - HYPERNATRAEMIA [None]
  - HYPERSENSITIVITY [None]
  - HYPOTENSION [None]
  - RENAL FAILURE ACUTE [None]
  - RESPIRATORY DISTRESS [None]
  - RESPIRATORY FAILURE [None]
  - SPLENIC HAEMORRHAGE [None]
  - SPLENIC INFARCTION [None]
  - SPLENOMEGALY [None]
  - TACHYCARDIA [None]
  - URTICARIA [None]
  - WHEEZING [None]
